FAERS Safety Report 4658605-9 (Version None)
Quarter: 2005Q2

REPORT INFORMATION
  Report Type: 
  Country: None (occurrence: None)
  Receive Date: 20050509
  Receipt Date: 20050427
  Transmission Date: 20051028
  Serious: Yes (Other)
  Sender: FDA-Public Use
  Company Number: 2005066818

PATIENT
  Sex: Female
  Weight: 200 kg

DRUGS (3)
  1. CELEBREX [Suspect]
     Indication: OSTEOARTHRITIS
     Dosage: 200 MG (200 MG, QD INTERVAL:  EVERY DAY), ORAL
     Route: 048
     Dates: start: 19990101
  2. DYAZIDE [Concomitant]
  3. VERAPAMIL [Concomitant]

REACTIONS (3)
  - DRUG EFFECT DECREASED [None]
  - LOWER LIMB FRACTURE [None]
  - MENISCUS LESION [None]
